FAERS Safety Report 20290367 (Version 3)
Quarter: 2022Q1

REPORT INFORMATION
  Report Type: Spontaneous
  Country: DE (occurrence: DE)
  Receive Date: 20220104
  Receipt Date: 20220217
  Transmission Date: 20220423
  Serious: Yes (Hospitalization)
  Sender: FDA-Public Use
  Company Number: None

PATIENT
  Age: 81 Year
  Sex: Male

DRUGS (5)
  1. CLOPIDOGREL [Suspect]
     Active Substance: CLOPIDOGREL BISULFATE
     Indication: Hypoperfusion
     Dosage: 75 MILLIGRAM, OD (EVERY MORNING AT BREAKFAST) STOPPED WITH THE INSTRUCTION FROM NEUROLOGY
     Route: 048
     Dates: start: 202106, end: 20210912
  2. LEVETIRACETAM [Suspect]
     Active Substance: LEVETIRACETAM
     Indication: Hypoperfusion
     Dosage: UNK UNK, BID, 1-0-1
     Route: 065
  3. ATORVASTATIN [Concomitant]
     Active Substance: ATORVASTATIN
     Indication: Cerebral ischaemia
     Dosage: UNK
     Route: 065
     Dates: start: 202106
  4. PROSTAGUTT [Concomitant]
     Indication: Product used for unknown indication
     Dosage: UNK
     Route: 065
  5. HERBALS\PLANTAGO INDICA WHOLE [Concomitant]
     Active Substance: HERBALS\PLANTAGO INDICA WHOLE
     Indication: Product used for unknown indication
     Dosage: UNK
     Route: 065

REACTIONS (8)
  - Contusion [Unknown]
  - Blood urine present [Recovered/Resolved]
  - Therapy cessation [Unknown]
  - Aphasia [Recovered/Resolved]
  - Prostatic adenoma [Recovered/Resolved]
  - Product use in unapproved indication [Unknown]
  - Wound haemorrhage [Recovered/Resolved]
  - Impaired driving ability [Unknown]

NARRATIVE: CASE EVENT DATE: 20210929
